FAERS Safety Report 4508922-8 (Version None)
Quarter: 2004Q4

REPORT INFORMATION
  Report Type: 
  Country: None (occurrence: None)
  Receive Date: 20041123
  Receipt Date: 20021003
  Transmission Date: 20050328
  Serious: Yes (Hospitalization)
  Sender: FDA-Public Use
  Company Number: FR-GLAXOSMITHKLINE-B0281802A

PATIENT
  Age: 55 Year
  Sex: Male
  Weight: 70 kg

DRUGS (2)
  1. COMBIVIR [Suspect]
     Indication: HIV INFECTION
     Dosage: 2UNIT PER DAY
     Route: 048
     Dates: start: 20010124
  2. NORVIR [Suspect]
     Indication: HIV INFECTION
     Dosage: 15ML PER DAY
     Route: 048
     Dates: start: 20010124

REACTIONS (2)
  - ARTHRALGIA [None]
  - OSTEONECROSIS [None]
